FAERS Safety Report 15515319 (Version 1)
Quarter: 2018Q4

REPORT INFORMATION
  Report Type: Spontaneous
  Country: US (occurrence: US)
  Receive Date: 20181017
  Receipt Date: 20181017
  Transmission Date: 20190205
  Serious: Yes (Other)
  Sender: FDA-Public Use
  Company Number: US-HIKMA PHARMACEUTICALS USA INC.-US-H14001-18-07831

PATIENT
  Age: 64 Year
  Sex: Female

DRUGS (4)
  1. PHENYLEPHRINE [Suspect]
     Active Substance: PHENYLEPHRINE\PHENYLEPHRINE HYDROCHLORIDE
     Indication: INDUCTION OF ANAESTHESIA
     Route: 065
  2. EPHEDRINE. [Concomitant]
     Active Substance: EPHEDRINE
     Indication: INDUCTION OF ANAESTHESIA
     Route: 065
  3. PROPOFOL. [Suspect]
     Active Substance: PROPOFOL
     Indication: INDUCTION OF ANAESTHESIA
     Route: 065
  4. REMIFENTANIL [Concomitant]
     Active Substance: REMIFENTANIL
     Indication: INDUCTION OF ANAESTHESIA
     Route: 065

REACTIONS (2)
  - Hypotension [Recovered/Resolved]
  - Tachyphylaxis [Recovered/Resolved]
